FAERS Safety Report 15238933 (Version 2)
Quarter: 2018Q3

REPORT INFORMATION
  Report Type: Report from Study
  Country: US (occurrence: US)
  Receive Date: 20180803
  Receipt Date: 20180919
  Transmission Date: 20181010
  Serious: Yes (Hospitalization)
  Sender: FDA-Public Use
  Company Number: US-UCBSA-2018034077

PATIENT
  Sex: Female
  Weight: 91 kg

DRUGS (3)
  1. LEVETIRACETAM. [Suspect]
     Active Substance: LEVETIRACETAM
     Indication: ARTERIOVENOUS MALFORMATION
     Dosage: 2 DF, 2X/DAY (BID)
     Route: 048
  2. ATORVASTATIN [Concomitant]
     Active Substance: ATORVASTATIN
     Indication: BLOOD CHOLESTEROL DECREASED
     Dosage: UNK
     Route: 048
  3. VIMPAT [Suspect]
     Active Substance: LACOSAMIDE
     Indication: ARTERIOVENOUS MALFORMATION
     Dosage: 1 DF, 2X/DAY (BID)
     Route: 048

REACTIONS (2)
  - Coma [Recovered/Resolved]
  - Drug dose omission [Unknown]
